FAERS Safety Report 5278370-4 (Version None)
Quarter: 2007Q1

REPORT INFORMATION
  Report Type: 
  Country: None (occurrence: None)
  Receive Date: 20061213
  Receipt Date: 20050615
  Transmission Date: 20070707
  Serious: No
  Sender: FDA-Public Use
  Company Number: 2005UW10114

PATIENT
  Age: 9 Year
  Sex: Female

DRUGS (2)
  1. SEROQUEL [Suspect]
     Indication: ABNORMAL BEHAVIOUR
     Dosage: 25 MG PO
     Route: 048
     Dates: start: 20020101
  2. SEROQUEL [Suspect]
     Indication: ABNORMAL BEHAVIOUR
     Dosage: 600 MG PO
     Route: 048

REACTIONS (1)
  - GLAUCOMA [None]
